FAERS Safety Report 4408052-X (Version None)
Quarter: 2004Q3

REPORT INFORMATION
  Report Type: 
  Country: None (occurrence: None)
  Receive Date: 20040726
  Receipt Date: 20040706
  Transmission Date: 20050211
  Serious: Yes (Hospitalization)
  Sender: FDA-Public Use
  Company Number: US-MERCK-0407USA00482

PATIENT
  Age: 63 Year
  Sex: Male

DRUGS (7)
  1. DIGOXIN [Concomitant]
     Route: 065
  2. FUROSEMIDE [Concomitant]
     Route: 065
  3. HYDRALAZINE [Concomitant]
     Route: 065
  4. INSULIN [Concomitant]
     Route: 065
  5. COZAAR [Suspect]
     Indication: HYPERTENSION
     Route: 048
  6. COZAAR [Suspect]
     Indication: ISCHAEMIC CARDIOMYOPATHY
     Route: 048
  7. ZOCOR [Concomitant]
     Route: 048

REACTIONS (5)
  - ANGIOTENSIN CONVERTING ENZYME INCREASED [None]
  - HISTOPLASMOSIS [None]
  - HYPERCALCAEMIA [None]
  - PLATELET COUNT DECREASED [None]
  - WHITE BLOOD CELL COUNT DECREASED [None]
